FAERS Safety Report 24994922 (Version 1)
Quarter: 2025Q1

REPORT INFORMATION
  Report Type: Report from Study
  Country: IN (occurrence: IN)
  Receive Date: 20250221
  Receipt Date: 20250221
  Transmission Date: 20250408
  Serious: Yes (Other)
  Sender: ROCHE
  Company Number: IN-002147023-NVSC2025IN028172

PATIENT
  Sex: Male

DRUGS (1)
  1. RANIBIZUMAB [Suspect]
     Active Substance: RANIBIZUMAB
     Indication: Retinal vein occlusion
     Route: 050
     Dates: start: 20241024

REACTIONS (6)
  - Neovascularisation [Unknown]
  - Vitreous haemorrhage [Unknown]
  - Retinal scar [Unknown]
  - Macular scar [Unknown]
  - Colour blindness [Unknown]
  - Diabetic retinopathy [Unknown]
